FAERS Safety Report 14145765 (Version 2)
Quarter: 2017Q4

REPORT INFORMATION
  Report Type: Spontaneous
  Country: US (occurrence: US)
  Receive Date: 20171031
  Receipt Date: 20171107
  Transmission Date: 20180321
  Serious: Yes (Other)
  Sender: FDA-Public Use
  Company Number: US-PFIZER INC-2017397244

PATIENT
  Age: 51 Year
  Sex: Female
  Weight: 104.76 kg

DRUGS (25)
  1. ALBUTEROL SULFATE. [Concomitant]
     Active Substance: ALBUTEROL SULFATE
     Dosage: UNK, AS NEEDED (2.5MG/3ML, 1 UNIT DOSE IN NEBULIZER EVERY 6 HOURS )
     Route: 055
  2. PROTONIX [Concomitant]
     Active Substance: PANTOPRAZOLE SODIUM
     Indication: GASTROOESOPHAGEAL REFLUX DISEASE
     Dosage: 40 MG, AS NEEDED (TAKE 1 TABLET DAILY)
     Route: 048
  3. TRICOR [Concomitant]
     Active Substance: FENOFIBRATE
     Indication: BLOOD CHOLESTEROL ABNORMAL
     Dosage: 145 MG, DAILY
     Route: 048
  4. TRUEPLUS GLUCOSE [Concomitant]
     Dosage: UNK, 3X/DAY
     Dates: start: 20161110
  5. LYRICA [Suspect]
     Active Substance: PREGABALIN
     Indication: NEURALGIA
  6. ALPRAZOLAM. [Concomitant]
     Active Substance: ALPRAZOLAM
     Indication: DEPRESSION
     Dosage: 0.5 MG, AS NEEDED (QD; BID)
     Route: 048
     Dates: start: 20141112
  7. ALBUTEROL SULFATE. [Concomitant]
     Active Substance: ALBUTEROL SULFATE
     Dosage: UNK, AS NEEDED (EVERY 8 HOURS)(2.5 MG/3ML)/USE 1 UNIT
     Route: 055
  8. BD [Concomitant]
     Dosage: UNK (USE 1 DEVICE 5 TIMES DAILY WITH INSULIN INJECTIONS)
     Dates: start: 20150131
  9. ALPRAZOLAM. [Concomitant]
     Active Substance: ALPRAZOLAM
     Indication: MOOD SWINGS
     Dosage: 1 DF, AS NEEDED
     Route: 048
     Dates: start: 20141112
  10. ATORVASTATIN CALCIUM. [Concomitant]
     Active Substance: ATORVASTATIN CALCIUM
     Dosage: 20 MG, 1X/DAY (AT BEDTIME)
     Route: 048
  11. VITAMIN B12 [Concomitant]
     Active Substance: CYANOCOBALAMIN
     Dosage: 1 DF, DAILY (AS DIRECTED)
  12. CITALOPRAM HYDROBROMIDE. [Concomitant]
     Active Substance: CITALOPRAM HYDROBROMIDE
     Indication: DEPRESSED MOOD
     Dosage: 40 MG, UNK (TAKE 2 TABLETS BY MOUTH AS DIRECTED)
     Route: 048
     Dates: start: 20141112
  13. FENTANYL. [Concomitant]
     Active Substance: FENTANYL
     Indication: STENOSIS
  14. LEVEMIR [Concomitant]
     Active Substance: INSULIN DETEMIR
     Dosage: 60 IU, 2X/DAY
     Route: 058
     Dates: start: 20161107
  15. METFORMIN HCL [Concomitant]
     Active Substance: METFORMIN HYDROCHLORIDE
     Dosage: 500 MG, 2X/DAY
     Route: 048
     Dates: start: 20161107
  16. OXYCODONE HYDROCHLORIDE. [Concomitant]
     Active Substance: OXYCODONE HYDROCHLORIDE
     Indication: PAIN
     Dosage: 30 MG, AS NEEDED (TAKE 1 TABLET EVERY 6 HOURS)
     Route: 048
     Dates: start: 20140812
  17. LYRICA [Suspect]
     Active Substance: PREGABALIN
     Indication: DIABETIC VASCULAR DISORDER
     Dosage: 300 MG, 3X/DAY
     Route: 048
     Dates: start: 20170829
  18. LYRICA [Suspect]
     Active Substance: PREGABALIN
     Indication: DIABETIC NEUROPATHY
  19. ALCOHOL WIPE [Concomitant]
     Active Substance: ISOPROPYL ALCOHOL
     Dosage: UNK, 4X/DAY
     Dates: start: 20161107
  20. BISACODYL. [Concomitant]
     Active Substance: BISACODYL
     Dosage: 10 MG, 2X/DAY
     Route: 054
  21. COLACE [Concomitant]
     Active Substance: DOCUSATE SODIUM
     Dosage: 100 MG, AS NEEDED (TAKE 1 CAPSULE TWICE DAILY)
     Route: 048
  22. ELIQUIS [Concomitant]
     Active Substance: APIXABAN
     Dosage: 5 MG, 2X/DAY
     Route: 048
  23. FENOFIBRATE. [Concomitant]
     Active Substance: FENOFIBRATE
     Indication: BLOOD CHOLESTEROL ABNORMAL
     Dosage: 145 MG, DAILY
     Route: 048
     Dates: start: 20161006
  24. FENTANYL. [Concomitant]
     Active Substance: FENTANYL
     Indication: PAIN
     Dosage: UNK (50 MCG/HR/APPLY ONE PATCH TO SKIN EVERY 48-72 HOURS)
     Route: 062
  25. NOVOLOG [Concomitant]
     Active Substance: INSULIN ASPART
     Dosage: 20 IU, 3X/DAY
     Route: 058
     Dates: start: 20161107

REACTIONS (4)
  - Dyspnoea [Unknown]
  - Prescribed overdose [Unknown]
  - Wound infection [Unknown]
  - Trigger finger [Unknown]
